FAERS Safety Report 8555310-3 (Version None)
Quarter: 2012Q3

REPORT INFORMATION
  Report Type: 
  Country: None (occurrence: None)
  Receive Date: 20120731
  Receipt Date: 20120724
  Transmission Date: 20120928
  Serious: No
  Sender: FDA-Public Use
  Company Number: US-009507513-1207USA009592

PATIENT

DRUGS (1)
  1. PEG-INTRON [Suspect]
     Indication: HEPATITIS C
     Dosage: 120 MICROGRAM, QW
     Dates: start: 20120524

REACTIONS (7)
  - FATIGUE [None]
  - DIARRHOEA [None]
  - WEIGHT DECREASED [None]
  - NAUSEA [None]
  - ANORECTAL DISCOMFORT [None]
  - HEADACHE [None]
  - INJECTION SITE REACTION [None]
